FAERS Safety Report 8746528 (Version 2)
Quarter: 2012Q4

REPORT INFORMATION
  Report Type: Report from Study
  Country: NL (occurrence: NL)
  Receive Date: 20120827
  Receipt Date: 20120928
  Transmission Date: 20130627
  Serious: Yes (Other)
  Sender: FDA-Public Use
  Company Number: NL-009507513-1208NLD010243

PATIENT
  Age: 58 Year
  Sex: Male
  Weight: 78 kg

DRUGS (4)
  1. TEMOZOLOMIDE [Suspect]
     Indication: ASTROCYTOMA, LOW GRADE
     Dosage: 150 mg, qd
     Dates: start: 20060324, end: 20070215
  2. TEGRETOL [Concomitant]
     Dosage: 400 mg, UNK
     Dates: start: 2005
  3. KEPPRA [Concomitant]
     Indication: EPILEPSY
     Dosage: 500 mg, UNK
     Dates: start: 20051010
  4. MARCOUMAR [Concomitant]
     Dosage: UNK
     Dates: start: 1998

REACTIONS (1)
  - Diffuse large B-cell lymphoma stage III [Recovered/Resolved]
